FAERS Safety Report 8209578-3 (Version None)
Quarter: 2012Q1

REPORT INFORMATION
  Report Type: 
  Country: None (occurrence: None)
  Receive Date: 20120314
  Receipt Date: 20120307
  Transmission Date: 20120608
  Serious: Yes (Other)
  Sender: FDA-Public Use
  Company Number: JP-PFIZER INC-2012044647

PATIENT
  Age: 57 Year
  Sex: Female
  Weight: 44 kg

DRUGS (5)
  1. PRAVASTATIN SODIUM [Concomitant]
     Indication: DYSLIPIDAEMIA
     Dosage: 5 MG, 1X/DAY
     Route: 048
     Dates: start: 20101111
  2. VARENICLINE TARTRATE [Suspect]
     Dosage: 0.5 MG, 2X/DAY
     Route: 048
     Dates: start: 20120205, end: 20120208
  3. VARENICLINE TARTRATE [Suspect]
     Dosage: 1 MG, 2X/DAY
     Route: 048
     Dates: start: 20120209, end: 20120217
  4. VARENICLINE TARTRATE [Suspect]
     Dosage: 0.5 MG, 1X/DAY
     Route: 048
     Dates: start: 20120202, end: 20120204
  5. VARENICLINE TARTRATE [Suspect]
     Dosage: UNK
     Route: 048
     Dates: start: 20120201, end: 20120220

REACTIONS (13)
  - DIZZINESS [None]
  - AFFECT LABILITY [None]
  - BALANCE DISORDER [None]
  - DYSPHORIA [None]
  - THINKING ABNORMAL [None]
  - FEELING ABNORMAL [None]
  - EYELID DISORDER [None]
  - DECREASED APPETITE [None]
  - DYSPNOEA [None]
  - ANXIETY [None]
  - DEPRESSED MOOD [None]
  - ABNORMAL SENSATION IN EYE [None]
  - MENTAL DISORDER [None]
